FAERS Safety Report 7518344-3 (Version None)
Quarter: 2011Q2

REPORT INFORMATION
  Report Type: 
  Country: None (occurrence: None)
  Receive Date: 20110602
  Receipt Date: 20081107
  Transmission Date: 20111010
  Serious: Yes (Death, Hospitalization, Other)
  Sender: FDA-Public Use
  Company Number: US-BAYER-200838477NA

PATIENT
  Age: 56 Year
  Sex: Female
  Weight: 60 kg

DRUGS (16)
  1. LOSARTAN POTASSIUM [Concomitant]
     Dosage: 25 MG, AT SLEEP
     Route: 048
  2. WARFARIN SODIUM [Concomitant]
     Dosage: 5 MG ,2.5 MG
     Route: 048
  3. HEPARIN [Concomitant]
     Dosage: 25,000 UNITS
     Route: 042
     Dates: start: 20060925, end: 20060925
  4. TRASYLOL [Suspect]
     Dosage: LOADING DOSE OF 200 ML TIMES 3, PUMP PRIMED WITH 200 ML. WAS GIVEN
     Route: 042
     Dates: start: 20060925, end: 20060925
  5. LISINOPRIL [Concomitant]
     Dosage: 2.5 MG, DAILY
     Route: 048
  6. ACETYLSALICYLIC ACID SRT [Concomitant]
     Dosage: 81 MG DAILY
  7. TRASYLOL [Suspect]
     Indication: VENTRICULAR ASSIST DEVICE INSERTION
     Dosage: INITIAL TEST DOSE OF 1ML
     Route: 042
     Dates: start: 20060925, end: 20060925
  8. RED BLOOD CELLS [Concomitant]
     Dosage: 1 UNIT
     Dates: start: 20060925
  9. PLASMA [Concomitant]
     Dosage: 4 UNITS
     Dates: start: 20060925
  10. PLATELETS [Concomitant]
     Dosage: 2 UNITS
     Dates: start: 20060925
  11. NOVOLOG [Concomitant]
     Dosage: 4 UNITS, 3X DAILY
     Route: 048
  12. TORSEMIDE [Concomitant]
     Dosage: 100 MG IN AM 150 MG IN PM
     Route: 048
     Dates: start: 20060427
  13. PROTAMINE SULFATE [Concomitant]
     Dosage: 300 MG
     Route: 042
     Dates: start: 20060925, end: 20060925
  14. CARVEDILOL [Concomitant]
     Dosage: 3.125 MG IN AM 6.25 MG IN PM
     Route: 048
  15. SPIRONOLACTONE [Concomitant]
     Dosage: 25 MG 2 X DAILY
     Route: 048
  16. BUPROPION HCL [Concomitant]
     Dosage: 300 MG, DAILY
     Route: 048

REACTIONS (12)
  - HEPATIC FAILURE [None]
  - CONVULSION [None]
  - GASTROINTESTINAL DISORDER [None]
  - DEPRESSION [None]
  - ANHEDONIA [None]
  - RENAL FAILURE [None]
  - ANXIETY [None]
  - PAIN [None]
  - FEAR [None]
  - DEATH [None]
  - INJURY [None]
  - UNEVALUABLE EVENT [None]
